FAERS Safety Report 10629654 (Version 1)
Quarter: 2014Q4

REPORT INFORMATION
  Report Type: Spontaneous
  Country: US (occurrence: US)
  Receive Date: 20141205
  Receipt Date: 20141205
  Transmission Date: 20150529
  Serious: No
  Sender: FDA-Public Use
  Company Number: US-BRISTOL-MYERS SQUIBB COMPANY-21566823

PATIENT
  Sex: Female

DRUGS (1)
  1. ABILIFY [Suspect]
     Active Substance: ARIPIPRAZOLE
     Dosage: RESTARTED IT AT 1/2 THE ORIGINAL DOSE.

REACTIONS (3)
  - Palpitations [Unknown]
  - Feeling jittery [Unknown]
  - Anxiety [Unknown]
